FAERS Safety Report 8543785-5 (Version None)
Quarter: 2012Q3

REPORT INFORMATION
  Report Type: 
  Country: None (occurrence: None)
  Receive Date: 20120727
  Receipt Date: 20120723
  Transmission Date: 20120928
  Serious: Yes (Other)
  Sender: FDA-Public Use
  Company Number: US-PFIZER INC-2012178069

PATIENT
  Sex: Female
  Weight: 136 kg

DRUGS (13)
  1. AZITHROMYCIN [Suspect]
     Indication: SINUSITIS
     Dosage: UNK
  2. AZITHROMYCIN [Suspect]
     Indication: OROPHARYNGEAL PAIN
  3. ATIVAN [Concomitant]
     Dosage: UNK
  4. SYNTHROID [Concomitant]
     Indication: HYPOTHYROIDISM
     Dosage: UNK
  5. ZITHROMAX [Suspect]
     Indication: BRONCHITIS
  6. PEPCID AC [Concomitant]
     Indication: GASTROOESOPHAGEAL REFLUX DISEASE
     Dosage: UNK
  7. ZITHROMAX [Suspect]
     Indication: OROPHARYNGEAL PAIN
  8. AZITHROMYCIN [Suspect]
     Indication: BRONCHITIS
  9. DIOVAN [Concomitant]
     Indication: HYPERTENSION
     Dosage: UNK
  10. EFFEXOR XR [Suspect]
     Indication: DEPRESSION
     Dosage: 37.5 MG, 1X/DAY
     Route: 048
  11. CLARITIN [Concomitant]
     Indication: HYPERSENSITIVITY
     Dosage: UNK
  12. ZITHROMAX [Suspect]
     Indication: SINUSITIS
     Dosage: 250 MG, 1X/DAY
     Route: 048
  13. FLONASE [Concomitant]
     Indication: HYPERSENSITIVITY
     Dosage: UNK

REACTIONS (3)
  - ARTHROPATHY [None]
  - URINARY TRACT DISORDER [None]
  - POLLAKIURIA [None]
